FAERS Safety Report 5244648-3 (Version None)
Quarter: 2007Q1

REPORT INFORMATION
  Report Type: 
  Country: None (occurrence: None)
  Receive Date: 20061201
  Receipt Date: 20060816
  Transmission Date: 20070707
  Serious: No
  Sender: FDA-Public Use
  Company Number: 2006PV019563

PATIENT
  Sex: Male

DRUGS (2)
  1. BYETTA [Suspect]
     Indication: DIABETES MELLITUS NON-INSULIN-DEPENDENT
     Dosage: 5 MCG; BID; SC
     Route: 058
     Dates: start: 20060401
  2. AVANDIA [Suspect]
     Indication: DIABETES MELLITUS

REACTIONS (6)
  - DECREASED APPETITE [None]
  - INCREASED APPETITE [None]
  - INJECTION SITE URTICARIA [None]
  - RESPIRATORY TRACT CONGESTION [None]
  - WEIGHT DECREASED [None]
  - WEIGHT INCREASED [None]
